FAERS Safety Report 6122509-5 (Version None)
Quarter: 2009Q1

REPORT INFORMATION
  Report Type: 
  Country: None (occurrence: None)
  Receive Date: 20090318
  Receipt Date: 20090106
  Transmission Date: 20090719
  Serious: No
  Sender: FDA-Public Use
  Company Number: US-ASTRAZENECA-2008UW28802

PATIENT
  Age: 83 Year
  Sex: Male
  Weight: 74.8 kg

DRUGS (11)
  1. SYMBICORT [Suspect]
     Indication: BRONCHITIS
     Dosage: 160/4.5 MCG, 1 PUFF TWICE DAILY
     Route: 055
     Dates: start: 20081222, end: 20081223
  2. SYMBICORT [Suspect]
     Indication: WHEEZING
     Dosage: 160/4.5 MCG, 1 PUFF TWICE DAILY
     Route: 055
     Dates: start: 20081222, end: 20081223
  3. SYMBICORT [Suspect]
     Dosage: 160/4.5 MCT, 2 PUFFS TWICE DAILY
     Route: 055
     Dates: start: 20081223
  4. SYMBICORT [Suspect]
     Dosage: 160/4.5 MCT, 2 PUFFS TWICE DAILY
     Route: 055
     Dates: start: 20081223
  5. METFORMIN HCL [Concomitant]
  6. LORATADINE [Concomitant]
  7. LEVOTHYROXINE [Concomitant]
  8. SIMVASTATIN [Concomitant]
  9. MELOXICAM [Concomitant]
  10. VERAPAMIL [Concomitant]
  11. LISINOPRIL [Concomitant]
     Route: 048

REACTIONS (2)
  - DRUG INEFFECTIVE [None]
  - WHEEZING [None]
